FAERS Safety Report 25489803 (Version 1)
Quarter: 2025Q2

REPORT INFORMATION
  Report Type: Spontaneous
  Country: CA (occurrence: CA)
  Receive Date: 20250627
  Receipt Date: 20250627
  Transmission Date: 20250716
  Serious: Yes (Hospitalization)
  Sender: MERCK SHARP & DOHME LLC
  Company Number: CA-009507513-2411CAN008092

PATIENT
  Age: 2 Year

DRUGS (3)
  1. MEASLES-MUMPS-RUBELLA-VARICELLA VIRUS VACCINE, LIVE [Suspect]
     Active Substance: MEASLES-MUMPS-RUBELLA-VARICELLA VIRUS VACCINE, LIVE
     Indication: Prophylaxis
     Route: 065
  2. SIROLIMUS [Concomitant]
     Active Substance: SIROLIMUS
     Indication: Immunosuppression
  3. STERILE DILUENT (WATER) [Suspect]
     Active Substance: WATER
     Route: 065

REACTIONS (3)
  - Vaccine virus shedding [Unknown]
  - Measles [Unknown]
  - Contraindicated product administered [Unknown]
